FAERS Safety Report 5677871-4 (Version None)
Quarter: 2008Q1

REPORT INFORMATION
  Report Type: 
  Country: None (occurrence: None)
  Receive Date: 20080319
  Receipt Date: 20080304
  Transmission Date: 20080703
  Serious: Yes (Hospitalization)
  Sender: FDA-Public Use
  Company Number: 232186J08USA

PATIENT
  Age: 64 Year
  Sex: Male

DRUGS (1)
  1. REBIF [Suspect]
     Indication: MULTIPLE SCLEROSIS
     Dosage: NOT REPORTED, NOT REPORTED, SUBCUTANEOUS
     Route: 058
     Dates: start: 20050105

REACTIONS (2)
  - ANEURYSM [None]
  - MYOCARDIAL INFARCTION [None]
